FAERS Safety Report 24049962 (Version 1)
Quarter: 2024Q3

REPORT INFORMATION
  Report Type: Spontaneous
  Country: US (occurrence: US)
  Receive Date: 20240704
  Receipt Date: 20240704
  Transmission Date: 20241016
  Serious: No
  Sender: AMGEN
  Company Number: US-AMGEN-USASP2024130217

PATIENT
  Age: 68 Year
  Sex: Female

DRUGS (1)
  1. INFLIXIMAB [Suspect]
     Active Substance: INFLIXIMAB
     Indication: Crohn^s disease
     Dosage: UNK
     Route: 042

REACTIONS (3)
  - Drug specific antibody present [Recovering/Resolving]
  - Drug level decreased [Recovering/Resolving]
  - Therapeutic product effect decreased [Recovering/Resolving]
